FAERS Safety Report 12108970 (Version 1)
Quarter: 2016Q1

REPORT INFORMATION
  Report Type: Spontaneous
  Country: PL (occurrence: PL)
  Receive Date: 20160224
  Receipt Date: 20160224
  Transmission Date: 20160526
  Serious: Yes (Other)
  Sender: FDA-Public Use
  Company Number: PL-ROCHE-1714132

PATIENT
  Sex: Female

DRUGS (4)
  1. HERCEPTIN [Suspect]
     Active Substance: TRASTUZUMAB
     Indication: INVASIVE DUCTAL BREAST CARCINOMA
     Route: 065
     Dates: start: 201101, end: 201201
  2. ZOMIKOS [Concomitant]
  3. ZOLADEX [Concomitant]
     Active Substance: GOSERELIN ACETATE
  4. TAMOXIFEN [Suspect]
     Active Substance: TAMOXIFEN
     Indication: INVASIVE DUCTAL BREAST CARCINOMA
     Route: 065
     Dates: start: 201101

REACTIONS (2)
  - Ovarian cyst [Recovered/Resolved]
  - Carbohydrate antigen 125 increased [Recovered/Resolved]

NARRATIVE: CASE EVENT DATE: 201501
